FAERS Safety Report 12095187 (Version 1)
Quarter: 2016Q1

REPORT INFORMATION
  Report Type: Spontaneous
  Country: US (occurrence: US)
  Receive Date: 20160219
  Receipt Date: 20160219
  Transmission Date: 20160526
  Serious: Yes (Hospitalization)
  Sender: FDA-Public Use
  Company Number: US-MALLINCKRODT-T201600438

PATIENT
  Age: 93 Year
  Sex: Female
  Weight: 43 kg

DRUGS (2)
  1. TYLENOL [Concomitant]
     Active Substance: ACETAMINOPHEN
  2. TEMAZEPAM. [Suspect]
     Active Substance: TEMAZEPAM
     Indication: INSOMNIA
     Dosage: 15 MG, QHS
     Route: 048
     Dates: start: 201508

REACTIONS (9)
  - Posture abnormal [Recovered/Resolved]
  - Opiates positive [Unknown]
  - Off label use [Not Recovered/Not Resolved]
  - Incoherent [Recovered/Resolved]
  - Feeding disorder [Recovered/Resolved]
  - Memory impairment [Recovered/Resolved]
  - Abasia [Recovered/Resolved]
  - Dysphagia [Recovered/Resolved]
  - Lethargy [Recovered/Resolved]

NARRATIVE: CASE EVENT DATE: 20160204
